FAERS Safety Report 7229439-6 (Version None)
Quarter: 2011Q1

REPORT INFORMATION
  Report Type: 
  Country: None (occurrence: None)
  Receive Date: 20110117
  Receipt Date: 20110107
  Transmission Date: 20110831
  Serious: Yes (Hospitalization)
  Sender: FDA-Public Use
  Company Number: B0692611A

PATIENT

DRUGS (5)
  1. RETROVIR [Suspect]
     Dates: start: 20090703, end: 20090703
  2. EPIVIR [Suspect]
     Indication: HIV INFECTION
     Dates: end: 20090703
  3. RETROVIR [Suspect]
     Indication: ANTIVIRAL PROPHYLAXIS
     Route: 048
     Dates: start: 20090703, end: 20090814
  4. ZERIT [Suspect]
     Indication: HIV INFECTION
     Dates: end: 20090703
  5. REYATAZ [Suspect]
     Indication: HIV INFECTION
     Dates: end: 20090703

REACTIONS (4)
  - OCULAR NEOPLASM [None]
  - DRUG EXPOSURE DURING PREGNANCY [None]
  - STRABISMUS [None]
  - RETINOBLASTOMA [None]
